FAERS Safety Report 5692842-X (Version None)
Quarter: 2008Q2

REPORT INFORMATION
  Report Type: 
  Country: None (occurrence: None)
  Receive Date: 20080401
  Receipt Date: 20080315
  Transmission Date: 20081010
  Serious: Yes (Other)
  Sender: FDA-Public Use
  Company Number: ADE2008-0153

PATIENT
  Age: 54 Year
  Sex: Male

DRUGS (3)
  1. ATENOLOL [Suspect]
     Indication: ATRIAL FLUTTER
     Dosage: 50MG X 2 DOSES PO
     Route: 048
     Dates: start: 20060508
  2. AMIODARONE [Suspect]
     Indication: ATRIAL FLUTTER
     Dosage: 300MG IV
     Route: 042
     Dates: start: 20060509, end: 20060509
  3. LEVOTHYROXINE SODIUM [Concomitant]

REACTIONS (2)
  - BLOOD PRESSURE IMMEASURABLE [None]
  - DRUG EFFECT DECREASED [None]
